FAERS Safety Report 10060537 (Version 1)
Quarter: 2014Q2

REPORT INFORMATION
  Report Type: Spontaneous
  Country: IE (occurrence: IE)
  Receive Date: 20140404
  Receipt Date: 20140404
  Transmission Date: 20141212
  Serious: Yes (Other)
  Sender: FDA-Public Use
  Company Number: IE-ABBVIE-14P-229-1219193-00

PATIENT
  Age: 60 Year
  Sex: Female

DRUGS (2)
  1. ADALIMUMAB [Suspect]
     Indication: SYNOVITIS
  2. METHOTREXATE [Suspect]
     Indication: SYNOVITIS

REACTIONS (3)
  - Pulmonary cavitation [Unknown]
  - Pulmonary mass [Unknown]
  - Bladder transitional cell carcinoma [Unknown]
